FAERS Safety Report 24754634 (Version 1)
Quarter: 2024Q4

REPORT INFORMATION
  Report Type: Spontaneous
  Country: IN (occurrence: IN)
  Receive Date: 20241219
  Receipt Date: 20241219
  Transmission Date: 20250115
  Serious: Yes (Other)
  Sender: PFIZER
  Company Number: IN-PFIZER INC-PV202400049355

PATIENT
  Age: 67 Year
  Sex: Female
  Weight: 83.6 kg

DRUGS (15)
  1. PALBOCICLIB [Suspect]
     Active Substance: PALBOCICLIB
     Indication: Breast cancer metastatic
     Dosage: 125 MG, CYCLIC (ONCE DAILY AFTER FOOD FOR 21 DAYS AND F/B AFTER 7 DAYS)
     Route: 048
  2. LETROZOLE [Concomitant]
     Active Substance: LETROZOLE
     Indication: Breast cancer metastatic
     Dosage: 2.5 MG, 1X/DAY (AFTER FOOD)
     Route: 048
  3. ZOLEDRONIC ACID [Concomitant]
     Active Substance: ZOLEDRONIC ACID
     Indication: Breast cancer metastatic
     Dosage: 4 MG (IN 100 ML NS FOR 30 MINS), 3 MONTHLY
     Route: 042
  4. ZOLEDRONIC ACID [Concomitant]
     Active Substance: ZOLEDRONIC ACID
     Dosage: 3 MONTHLY
  5. OROFER XT [Concomitant]
     Dosage: UNK, ALTERNATE DAY (1-0-0, 1 MONTH, AFTER FOOD)
  6. MINERALS\VITAMINS [Concomitant]
     Active Substance: MINERALS\VITAMINS
     Dosage: UNK, 1X/DAY (0-1-0, 1 MONTH, AFTER FOOD)
  7. CALCIUM\CHOLECALCIFEROL [Concomitant]
     Active Substance: CALCIUM\CHOLECALCIFEROL
     Dosage: 500 MG, 1X/DAY (1-0-0, 1 MONTH, AFTER FOOD)
  8. VITAMIN D3 [Concomitant]
     Active Substance: CHOLECALCIFEROL
     Dosage: UNK, MONTHLY (SACHET 60 K MONTHLY, WITH MILK)
     Route: 048
  9. DOLO 650 [Concomitant]
     Indication: Pain
     Dosage: AS NEEDED (SOS)
  10. DOLO 650 [Concomitant]
     Indication: Pyrexia
  11. ALLEGRA [Concomitant]
     Active Substance: FEXOFENADINE HYDROCHLORIDE
     Indication: Pruritus
     Dosage: AS NEEDED (SOS)
  12. ZOLPIDEM TARTRATE [Concomitant]
     Active Substance: ZOLPIDEM TARTRATE
     Indication: Insomnia
     Dosage: AS NEEDED (SOS)
  13. AMLODIPINE BESYLATE [Concomitant]
     Active Substance: AMLODIPINE BESYLATE
     Dosage: 5 MG, 1X/DAY (1-0-0, 7 DAYS, AFTER FOOD)
  14. AMLODIPINE BESYLATE [Concomitant]
     Active Substance: AMLODIPINE BESYLATE
     Dosage: 5 MG, 1X/DAY (1-0-0, 1 MONTH, AFTER FOOD)
  15. FULVESTRANT [Concomitant]
     Active Substance: FULVESTRANT
     Indication: Breast cancer metastatic
     Dosage: 500 MG, MONTHLY STAT
     Route: 030

REACTIONS (6)
  - Blood pressure increased [Not Recovered/Not Resolved]
  - Neoplasm progression [Unknown]
  - Pruritus [Unknown]
  - Haemoglobin decreased [Not Recovered/Not Resolved]
  - White blood cell count decreased [Not Recovered/Not Resolved]
  - Neutrophil count decreased [Not Recovered/Not Resolved]

NARRATIVE: CASE EVENT DATE: 20240610
